FAERS Safety Report 16880817 (Version 4)
Quarter: 2020Q1

REPORT INFORMATION
  Report Type: Spontaneous
  Country: DE (occurrence: DE)
  Receive Date: 20191003
  Receipt Date: 20200115
  Transmission Date: 20200409
  Serious: Yes (Death, Life-Threatening, Hospitalization, Other)
  Sender: FDA-Public Use
  Company Number: DE-ELI_LILLY_AND_COMPANY-DE201910000270

PATIENT
  Age: 57 Year
  Sex: Male

DRUGS (9)
  1. MYCOPHENOLATE MOFETIL. [Concomitant]
     Active Substance: MYCOPHENOLATE MOFETIL
     Indication: IMMUNOSUPPRESSION
     Dosage: 200 MG, DAILY
     Route: 065
     Dates: start: 20190907
  2. MYCOPHENOLATE MOFETIL. [Concomitant]
     Active Substance: MYCOPHENOLATE MOFETIL
     Dosage: 2000 MG, DAILY
     Route: 065
  3. CISPLATIN. [Suspect]
     Active Substance: CISPLATIN
     Indication: NON-SMALL CELL LUNG CANCER METASTATIC
     Dosage: UNK UNK, UNKNOWN
     Route: 065
     Dates: end: 2019
  4. MYCOPHENOLATE MOFETIL. [Concomitant]
     Active Substance: MYCOPHENOLATE MOFETIL
     Dosage: 1000 MG, DAILY
     Route: 065
  5. PREDNISOLONE. [Concomitant]
     Active Substance: PREDNISOLONE
     Dosage: 1.5 MG/KG, UNKNOWN
     Route: 065
  6. KEYTRUDA [Suspect]
     Active Substance: PEMBROLIZUMAB
     Indication: NON-SMALL CELL LUNG CANCER METASTATIC
     Dosage: 200 MILLIGRAM, EVERY THREE WEEKS
     Dates: end: 2019
  7. PEMETREXED. [Suspect]
     Active Substance: PEMETREXED
     Indication: NON-SMALL CELL LUNG CANCER METASTATIC
     Dosage: UNK UNK, UNKNOWN
     Route: 065
     Dates: end: 2019
  8. PREDNISOLONE. [Concomitant]
     Active Substance: PREDNISOLONE
     Indication: IMMUNOSUPPRESSION
     Dosage: 250 MILLIGRAM, QD
     Route: 065
     Dates: start: 20190902
  9. PREDNISOLONE. [Concomitant]
     Active Substance: PREDNISOLONE
     Dosage: 2.5 MG/KG, UNKNOWN
     Route: 065

REACTIONS (3)
  - Acute hepatic failure [Fatal]
  - Autoimmune hepatitis [Not Recovered/Not Resolved]
  - Off label use [Unknown]

NARRATIVE: CASE EVENT DATE: 20190828
